FAERS Safety Report 16506887 (Version 1)
Quarter: 2019Q2

REPORT INFORMATION
  Report Type: Spontaneous
  Country: US (occurrence: US)
  Receive Date: 20190520
  Receipt Date: 20190520
  Transmission Date: 20190711
  Serious: Yes (Life-Threatening)
  Sender: FDA-Public Use
  Company Number: None

PATIENT
  Age: 63 Year
  Sex: Female
  Weight: 97.52 kg

DRUGS (9)
  1. SERTRALINE [Concomitant]
     Active Substance: SERTRALINE HYDROCHLORIDE
  2. FOLIC ACID. [Concomitant]
     Active Substance: FOLIC ACID
  3. ENALAPRIL [Concomitant]
     Active Substance: ENALAPRIL
  4. INSULIN [Concomitant]
     Active Substance: INSULIN NOS
  5. ASPIRIN. [Concomitant]
     Active Substance: ASPIRIN
  6. ATORVASTATIN  10MG [Suspect]
     Active Substance: ATORVASTATIN
     Indication: BLOOD CHOLESTEROL INCREASED
     Dosage: ?          QUANTITY:1 PILL A DAY ;?
     Route: 048
     Dates: start: 20121012, end: 201311
  7. CILOSTAZOL. [Concomitant]
     Active Substance: CILOSTAZOL
  8. VITAMIN D2 [Concomitant]
     Active Substance: ERGOCALCIFEROL
  9. VIT B5 [Concomitant]

REACTIONS (5)
  - Arthritis [None]
  - Myalgia [None]
  - Gait disturbance [None]
  - Muscle atrophy [None]
  - Grip strength decreased [None]

NARRATIVE: CASE EVENT DATE: 2013
